FAERS Safety Report 6077072-4 (Version None)
Quarter: 2009Q1

REPORT INFORMATION
  Report Type: 
  Country: None (occurrence: None)
  Receive Date: 20090213
  Receipt Date: 20090209
  Transmission Date: 20090719
  Serious: Yes (Hospitalization)
  Sender: FDA-Public Use
  Company Number: US-BAYER-200910190BCC

PATIENT
  Age: 92 Year
  Sex: Female
  Weight: 68 kg

DRUGS (5)
  1. ORIGINAL ALKA SELTZER [Suspect]
     Indication: LAXATIVE SUPPORTIVE CARE
     Dosage: TOTAL DAILY DOSE: 2 DF  UNIT DOSE: 1 DF
     Dates: end: 20090115
  2. PLENDIL [Concomitant]
  3. ZOCOR [Concomitant]
  4. MAXZIDE [Concomitant]
  5. AGGRENOX [Concomitant]

REACTIONS (6)
  - DIARRHOEA [None]
  - ERUCTATION [None]
  - MALAISE [None]
  - NAUSEA [None]
  - VOMITING [None]
  - WEIGHT DECREASED [None]
